FAERS Safety Report 6173296 (Version 15)
Quarter: 2013Q3

REPORT INFORMATION
  Report Type: Spontaneous
  Country: US (occurrence: US)
  Receive Date: 20061127
  Receipt Date: 20130927
  Transmission Date: 20140515
  Serious: Yes (Death, Other)
  Sender: FDA-Public Use
  Company Number: PHEH2006US14280

PATIENT
  Age: 64 Year
  Sex: Female
  Weight: 78.5 kg

DRUGS (8)
  1. AREDIA [Suspect]
     Route: 042
     Dates: end: 2002
  2. ZOMETA [Suspect]
     Route: 042
  3. ZOLOFT [Concomitant]
  4. NEULASTA [Concomitant]
  5. TAXOTERE [Concomitant]
  6. DECADRON                                /CAN/ [Concomitant]
     Dosage: 4 MG, QID
     Route: 048
  7. NAVELBINE ^ASTA MEDICA^ [Concomitant]
  8. TRAMADOL [Concomitant]

REACTIONS (41)
  - Breast cancer metastatic [Fatal]
  - Metastases to central nervous system [Fatal]
  - Metastases to lung [Fatal]
  - Pleural effusion [Fatal]
  - Pneumothorax [Fatal]
  - Lung infiltration [Fatal]
  - Osteonecrosis of jaw [Unknown]
  - Pain in jaw [Unknown]
  - Pain [Unknown]
  - Bone loss [Unknown]
  - Mouth ulceration [Unknown]
  - Injury [Unknown]
  - Decreased interest [Unknown]
  - General physical health deterioration [Unknown]
  - Oedema [Unknown]
  - Fluid retention [Unknown]
  - Weight increased [Unknown]
  - Tooth fracture [Unknown]
  - Osteosclerosis [Unknown]
  - Hepatic steatosis [Unknown]
  - Neutropenia [Unknown]
  - Spinal osteoarthritis [Unknown]
  - Depression [Unknown]
  - Nausea [Unknown]
  - Vomiting [Unknown]
  - Cataract [Unknown]
  - Atelectasis [Unknown]
  - Synovial cyst [Unknown]
  - Metastases to bone [Unknown]
  - Osteomyelitis [Unknown]
  - Exposed bone in jaw [Unknown]
  - Oral mucosal hypertrophy [Unknown]
  - Excessive granulation tissue [Unknown]
  - Radiculopathy [Unknown]
  - Dyspnoea [Unknown]
  - Intervertebral disc degeneration [Unknown]
  - Kyphosis [Unknown]
  - Pleural calcification [Unknown]
  - Loose tooth [Unknown]
  - Gingival bleeding [Unknown]
  - Soft tissue mass [Unknown]
